FAERS Safety Report 24273407 (Version 4)
Quarter: 2024Q3

REPORT INFORMATION
  Report Type: Spontaneous
  Country: US (occurrence: US)
  Receive Date: 20240902
  Receipt Date: 20240930
  Transmission Date: 20241017
  Serious: Yes (Other)
  Sender: UCB
  Company Number: US-UCBSA-2024042627

PATIENT
  Sex: Female

DRUGS (3)
  1. KEPPRA [Suspect]
     Active Substance: LEVETIRACETAM
     Indication: Seizure
     Dosage: 1000 MILLIGRAM, 2X/DAY (BID)
     Route: 048
     Dates: start: 20050815, end: 2024
  2. KEPPRA XR [Suspect]
     Active Substance: LEVETIRACETAM
     Indication: Seizure
     Dosage: 500 MG 5 TABLETS WAS PRESCRIBED, BUT PATIENT DID NOT RECEIVE THE FULL AMOUNT THAT WAS PRESCRIBED
     Dates: start: 2024
  3. LEVETIRACETAM [Suspect]
     Active Substance: LEVETIRACETAM
     Indication: Epilepsy
     Dosage: UNK
     Dates: start: 2023, end: 2024

REACTIONS (7)
  - Seizure [Not Recovered/Not Resolved]
  - Fatigue [Unknown]
  - Feeling abnormal [Unknown]
  - Therapeutic product ineffective [Unknown]
  - Product substitution issue [Unknown]
  - Product dispensing error [Unknown]
  - Incorrect dosage administered [Unknown]
